FAERS Safety Report 9127908 (Version 1)
Quarter: 2013Q1

REPORT INFORMATION
  Report Type: Spontaneous
  Country: US (occurrence: US)
  Receive Date: 20130228
  Receipt Date: 20130228
  Transmission Date: 20140127
  Serious: No
  Sender: FDA-Public Use
  Company Number: US-BRISTOL-MYERS SQUIBB COMPANY-17328238

PATIENT
  Age: 75 Year
  Sex: Female
  Weight: 87.53 kg

DRUGS (2)
  1. KOMBIGLYZE XR [Suspect]
     Dosage: 1DF=2.5MG/1000MG ?2 TABLETS
  2. GLYBURIDE [Suspect]

REACTIONS (1)
  - Medication error [Unknown]
